FAERS Safety Report 20355029 (Version 1)
Quarter: 2022Q1

REPORT INFORMATION
  Report Type: Spontaneous
  Country: US (occurrence: US)
  Receive Date: 20220120
  Receipt Date: 20220120
  Transmission Date: 20220423
  Serious: Yes (Death, Other)
  Sender: FDA-Public Use
  Company Number: US-SPECGX-T202102858

PATIENT
  Age: 18 Month
  Sex: Female
  Weight: 9 kg

DRUGS (1)
  1. METHADOSE [Suspect]
     Active Substance: METHADONE HYDROCHLORIDE
     Indication: Product used for unknown indication
     Dosage: UNK
     Route: 048

REACTIONS (6)
  - Cardio-respiratory arrest [Fatal]
  - Brain herniation [Unknown]
  - Hypoglycaemia [Unknown]
  - Seizure [Unknown]
  - Hypotension [Unknown]
  - Accidental exposure to product by child [Unknown]

NARRATIVE: CASE EVENT DATE: 20200101
